FAERS Safety Report 6660555-3 (Version None)
Quarter: 2010Q1

REPORT INFORMATION
  Report Type: 
  Country: None (occurrence: None)
  Receive Date: 20100331
  Receipt Date: 20100308
  Transmission Date: 20100710
  Serious: Yes (Other)
  Sender: FDA-Public Use
  Company Number: EC-BAYER-201011730LA

PATIENT
  Sex: Male

DRUGS (2)
  1. NEXAVAR [Suspect]
     Indication: HEPATIC NEOPLASM MALIGNANT
  2. GEMOX [Concomitant]
     Indication: BILE DUCT CANCER
     Route: 065

REACTIONS (2)
  - BILE DUCT CANCER [None]
  - HEPATIC NEOPLASM MALIGNANT [None]
